FAERS Safety Report 24663939 (Version 1)
Quarter: 2024Q4

REPORT INFORMATION
  Report Type: Spontaneous
  Country: FR (occurrence: FR)
  Receive Date: 20241126
  Receipt Date: 20241126
  Transmission Date: 20250114
  Serious: Yes (Other)
  Sender: RANBAXY
  Company Number: FR-AFSSAPS-RN2024001127

PATIENT
  Age: 66 Year
  Sex: Male

DRUGS (4)
  1. VALACYCLOVIR [Suspect]
     Active Substance: VALACYCLOVIR HYDROCHLORIDE
     Indication: Antiviral prophylaxis
     Dosage: UNK
     Route: 048
     Dates: start: 202311, end: 20240905
  2. IBRUTINIB [Suspect]
     Active Substance: IBRUTINIB
     Indication: Mantle cell lymphoma
     Dosage: UNK
     Route: 048
     Dates: start: 202401, end: 20240905
  3. VENETOCLAX [Suspect]
     Active Substance: VENETOCLAX
     Indication: Mantle cell lymphoma
     Dosage: UNK
     Route: 048
     Dates: start: 202402, end: 20240905
  4. ATOVAQUONE [Suspect]
     Active Substance: ATOVAQUONE
     Indication: Antifungal prophylaxis
     Dosage: UNK
     Route: 048
     Dates: start: 202312, end: 20240905

REACTIONS (2)
  - Neutropenia [Recovering/Resolving]
  - Hepatic cytolysis [Recovering/Resolving]

NARRATIVE: CASE EVENT DATE: 20240823
